FAERS Safety Report 13831037 (Version 5)
Quarter: 2018Q3

REPORT INFORMATION
  Report Type: Report from Study
  Country: DE (occurrence: DE)
  Receive Date: 20170803
  Receipt Date: 20180725
  Transmission Date: 20181010
  Serious: Yes (Hospitalization, Other)
  Sender: FDA-Public Use
  Company Number: DE-BRISTOL-MYERS SQUIBB COMPANY-BMS-2017-069113

PATIENT
  Age: 80 Year
  Sex: Female

DRUGS (2)
  1. ABATACEPT [Suspect]
     Active Substance: ABATACEPT
     Indication: RHEUMATOID ARTHRITIS
     Dosage: 125 MG, Q2WK
     Route: 058
     Dates: end: 20171025
  2. METHOTREXATE (METHOTREXATE SODIUM) [Suspect]
     Active Substance: METHOTREXATE SODIUM
     Indication: RHEUMATOID ARTHRITIS
     Dosage: 15 MG, QWK
     Route: 065
     Dates: end: 201711

REACTIONS (4)
  - Cholangitis [Unknown]
  - Osteoporotic fracture [Unknown]
  - Off label use [Unknown]
  - Bile duct stone [Unknown]

NARRATIVE: CASE EVENT DATE: 20160915
